FAERS Safety Report 4828239-1 (Version None)
Quarter: 2005Q4

REPORT INFORMATION
  Report Type: 
  Country: None (occurrence: None)
  Receive Date: 20051115
  Receipt Date: 20050520
  Transmission Date: 20060501
  Serious: No
  Sender: FDA-Public Use
  Company Number: US-BRISTOL-MYERS SQUIBB COMPANY-12976387

PATIENT
  Sex: Male
  Weight: 50 kg

DRUGS (2)
  1. SUSTIVA [Suspect]
     Dates: start: 20050505
  2. VIDEX [Suspect]
     Dates: start: 20050505

REACTIONS (3)
  - DIARRHOEA [None]
  - NAUSEA [None]
  - VOMITING [None]
